FAERS Safety Report 8390560 (Version 5)
Quarter: 2014Q1

REPORT INFORMATION
  Report Type: Report from Study
  Country: US (occurrence: US)
  Receive Date: 20120206
  Receipt Date: 20140129
  Transmission Date: 20141002
  Serious: Yes (Death, Life-Threatening, Other)
  Sender: FDA-Public Use
  Company Number: US-BIOGENIDEC-2012BI003299

PATIENT
  Age: 54 Year
  Sex: Female
  Weight: 68 kg

DRUGS (10)
  1. TYSABRI [Suspect]
     Indication: MULTIPLE SCLEROSIS
     Route: 042
     Dates: start: 20090729, end: 20100601
  2. PERCOCET [Concomitant]
  3. PERCOCET [Concomitant]
  4. FENTANYL [Concomitant]
  5. SOMA [Concomitant]
  6. PREMPRO [Concomitant]
  7. PREVACID [Concomitant]
  8. KLONOPIN [Concomitant]
  9. REQUIP [Concomitant]
  10. ZYRTEC [Concomitant]

REACTIONS (1)
  - Lung adenocarcinoma metastatic [Fatal]
